FAERS Safety Report 8025858-9 (Version None)
Quarter: 2012Q1

REPORT INFORMATION
  Report Type: 
  Country: None (occurrence: None)
  Receive Date: 20120105
  Receipt Date: 20110408
  Transmission Date: 20120608
  Serious: No
  Sender: FDA-Public Use
  Company Number: US-ABBOTT-11P-163-0717655-00

PATIENT
  Age: 65 Year
  Sex: Female
  Weight: 63.106 kg

DRUGS (3)
  1. PREDNISONE TAB [Interacting]
     Indication: EAR DISORDER
     Dosage: 1 ON SATURDAY AND 1 ON SUNDAY
     Route: 048
     Dates: start: 20110319, end: 20110320
  2. SYNTHROID [Suspect]
     Indication: HYPOTHYROIDISM
     Dosage: EVERY MORNING
     Route: 048
     Dates: start: 20000101
  3. ZYRTEC [Interacting]
     Indication: HYPERSENSITIVITY
     Dosage: TWICE DAILY AS NEEDED
     Route: 048

REACTIONS (4)
  - DRUG INTERACTION [None]
  - PALPITATIONS [None]
  - BLOOD PRESSURE FLUCTUATION [None]
  - EAR DISORDER [None]
